FAERS Safety Report 9860727 (Version 2)
Quarter: 2014Q1

REPORT INFORMATION
  Report Type: Spontaneous
  Country: BR (occurrence: BR)
  Receive Date: 20140202
  Receipt Date: 20140202
  Transmission Date: 20141002
  Serious: No
  Sender: FDA-Public Use
  Company Number: BR-ALLERGAN-1300845US

PATIENT
  Age: 42 Year
  Sex: Female
  Weight: 65 kg

DRUGS (4)
  1. BOTOX [Suspect]
     Indication: SKIN WRINKLING
     Dosage: 10 UNITS, SINGLE
     Dates: start: 20121217, end: 20121217
  2. DYSPORT [Concomitant]
     Indication: SKIN WRINKLING
     Dosage: UNK UNK, SINGLE
  3. YASMIN [Concomitant]
     Indication: PRODUCT USED FOR UNKNOWN INDICATION
  4. HLALURONIC ACID [Concomitant]
     Indication: SKIN WRINKLING

REACTIONS (2)
  - Injection site pain [Unknown]
  - Injection site pain [Unknown]
